FAERS Safety Report 9053711 (Version 1)
Quarter: 2013Q1

REPORT INFORMATION
  Report Type: Spontaneous
  Country: US (occurrence: None)
  Receive Date: 20130117
  Receipt Date: 20130117
  Transmission Date: 20140127
  Serious: Yes (Death, Other)
  Sender: FDA-Public Use
  Company Number: 2013MA000291

PATIENT
  Age: 42 Year
  Sex: Male

DRUGS (2)
  1. KADIAN [Suspect]
     Indication: PRODUCT USED FOR UNKNOWN INDICATION
     Dosage: DERM
  2. FENTANYL [Suspect]
     Dosage: DERM

REACTIONS (1)
  - Death [None]
